FAERS Safety Report 18518701 (Version 2)
Quarter: 2020Q4

REPORT INFORMATION
  Report Type: Spontaneous
  Country: US (occurrence: US)
  Receive Date: 20201118
  Receipt Date: 20201211
  Transmission Date: 20210114
  Serious: Yes (Other)
  Sender: FDA-Public Use
  Company Number: US-PURDUE-USA-2020-0165252

PATIENT
  Sex: Female

DRUGS (3)
  1. BUTRANS [Suspect]
     Active Substance: BUPRENORPHINE
     Indication: PRODUCT USED FOR UNKNOWN INDICATION
     Route: 062
  2. HYDROCODONE BITARTRATE (SIMILAR TO NDA 206627) [Suspect]
     Active Substance: HYDROCODONE BITARTRATE
     Indication: PRODUCT USED FOR UNKNOWN INDICATION
     Dosage: UNK
     Route: 048
  3. DILAUDID [Suspect]
     Active Substance: HYDROMORPHONE HYDROCHLORIDE
     Indication: PRODUCT USED FOR UNKNOWN INDICATION
     Dosage: UNK
     Route: 048

REACTIONS (11)
  - Back injury [Unknown]
  - Emotional distress [Unknown]
  - Mental impairment [Unknown]
  - Atrial fibrillation [Unknown]
  - Nephrolithiasis [Unknown]
  - Drug withdrawal syndrome [Unknown]
  - Road traffic accident [Unknown]
  - Drug dependence [Recovering/Resolving]
  - Tachycardia [Unknown]
  - Tibia fracture [Unknown]
  - Pain [Unknown]

NARRATIVE: CASE EVENT DATE: 199805
